FAERS Safety Report 5219270-5 (Version None)
Quarter: 2007Q1

REPORT INFORMATION
  Report Type: 
  Country: None (occurrence: None)
  Receive Date: 20070125
  Receipt Date: 20070118
  Transmission Date: 20070707
  Serious: Yes (Hospitalization)
  Sender: FDA-Public Use
  Company Number: FR-AVENTIS-200710325EU

PATIENT
  Age: 65 Year
  Sex: Female

DRUGS (5)
  1. FLUDEX                             /00340101/ [Suspect]
     Indication: DRUG USE FOR UNKNOWN INDICATION
     Route: 048
     Dates: start: 20050715, end: 20061030
  2. LEVOTHYROXINE SODIUM [Concomitant]
  3. TRANDATE [Concomitant]
  4. BROMAZEPAM [Concomitant]
  5. FOSAMAX [Concomitant]

REACTIONS (1)
  - LICHENOID KERATOSIS [None]
